FAERS Safety Report 8150596-1 (Version None)
Quarter: 2012Q1

REPORT INFORMATION
  Report Type: 
  Country: None (occurrence: None)
  Receive Date: 20120220
  Receipt Date: 20120209
  Transmission Date: 20120608
  Serious: Yes (Hospitalization)
  Sender: FDA-Public Use
  Company Number: FR-BRACCO-000662

PATIENT
  Sex: Male

DRUGS (7)
  1. ATARAX [Suspect]
     Indication: ANXIETY
     Route: 048
     Dates: start: 20110830, end: 20110830
  2. IBUPROFEN [Suspect]
     Indication: MUSCULOSKELETAL PAIN
     Route: 048
     Dates: start: 20110825, end: 20110830
  3. XYLOCAINE [Suspect]
     Indication: MUSCULOSKELETAL PAIN
     Route: 014
     Dates: start: 20110831, end: 20110831
  4. IOPAMIDOL [Suspect]
     Indication: MUSCULOSKELETAL PAIN
     Route: 014
     Dates: start: 20110831, end: 20110831
  5. IOPAMIDOL [Suspect]
     Indication: DIAGNOSTIC PROCEDURE
     Route: 014
     Dates: start: 20110831, end: 20110831
  6. TRIAMCINOLONE HEXACETONIDE SUSPENSION/INJ [Suspect]
     Indication: MUSCULOSKELETAL PAIN
     Route: 014
     Dates: start: 20110831, end: 20110831
  7. OMEPRAZOLE [Suspect]
     Indication: GASTRITIS PROPHYLAXIS
     Route: 048
     Dates: start: 20110825, end: 20110830

REACTIONS (2)
  - EOSINOPHIL COUNT INCREASED [None]
  - TOXIC SKIN ERUPTION [None]
